FAERS Safety Report 8350211-8 (Version None)
Quarter: 2012Q2

REPORT INFORMATION
  Report Type: 
  Country: None (occurrence: None)
  Receive Date: 20120510
  Receipt Date: 20120502
  Transmission Date: 20120825
  Serious: Yes (Other)
  Sender: FDA-Public Use
  Company Number: AR-ROCHE-1035951

PATIENT
  Sex: Female

DRUGS (1)
  1. LUCENTIS [Suspect]
     Indication: MACULOPATHY
     Route: 050
     Dates: start: 20100101

REACTIONS (4)
  - VISUAL ACUITY REDUCED [None]
  - EYE PAIN [None]
  - MACULOPATHY [None]
  - VISION BLURRED [None]
